FAERS Safety Report 6332994-1 (Version None)
Quarter: 2009Q3

REPORT INFORMATION
  Report Type: 
  Country: None (occurrence: None)
  Receive Date: 20090828
  Receipt Date: 20090826
  Transmission Date: 20100115
  Serious: Yes (Other)
  Sender: FDA-Public Use
  Company Number: PHHY2009KR27617

PATIENT
  Sex: Female

DRUGS (1)
  1. SANDOSTATIN LAR [Suspect]
     Indication: ACROMEGALY
     Dosage: 20 MG, EVERY 3 WEEKS
     Route: 030
     Dates: start: 20080901

REACTIONS (4)
  - ALOPECIA [None]
  - DEPRESSED MOOD [None]
  - FATIGUE [None]
  - HEAD DEFORMITY [None]
